FAERS Safety Report 10276683 (Version 2)
Quarter: 2014Q3

REPORT INFORMATION
  Report Type: Spontaneous
  Country: PL (occurrence: PL)
  Receive Date: 20140703
  Receipt Date: 20140903
  Transmission Date: 20150326
  Serious: Yes (Hospitalization)
  Sender: FDA-Public Use
  Company Number: PL-VERTEX PHARMACEUTICALS INC-2014-002968

PATIENT
  Sex: Female
  Weight: 62 kg

DRUGS (4)
  1. INCIVO [Suspect]
     Active Substance: TELAPREVIR
     Indication: HEPATITIS C
     Route: 048
     Dates: start: 20140422, end: 20140621
  2. PEGASYS [Suspect]
     Active Substance: PEGINTERFERON ALFA-2A
     Indication: HEPATITIS C
     Dosage: 180 MG, QW
     Route: 058
     Dates: start: 20140422, end: 20140621
  3. EUTHYROX [Suspect]
     Active Substance: LEVOTHYROXINE SODIUM
     Indication: PRODUCT USED FOR UNKNOWN INDICATION
     Dosage: 100 ?G, QD
     Route: 048
     Dates: start: 2000
  4. COPEGUS [Suspect]
     Active Substance: RIBAVIRIN
     Indication: HEPATITIS C
     Dosage: 1000 MG, QD
     Route: 048
     Dates: start: 20140422, end: 20140621

REACTIONS (9)
  - Oral mucosal blistering [Recovered/Resolved]
  - Pyrexia [Recovered/Resolved]
  - Nasal oedema [Recovered/Resolved]
  - Anaemia [Recovered/Resolved]
  - Urticaria [Recovered/Resolved]
  - Eyelid oedema [Recovered/Resolved]
  - Burning sensation [Recovered/Resolved]
  - Leukopenia [Recovered/Resolved]
  - Lip oedema [Recovered/Resolved]
